FAERS Safety Report 21559810 (Version 4)
Quarter: 2023Q2

REPORT INFORMATION
  Report Type: Spontaneous
  Country: US (occurrence: US)
  Receive Date: 20221107
  Receipt Date: 20230501
  Transmission Date: 20230722
  Serious: No
  Sender: FDA-Public Use
  Company Number: US-PFIZER INC-PV202200096863

PATIENT
  Age: 71 Year
  Sex: Female

DRUGS (1)
  1. XELJANZ XR [Suspect]
     Active Substance: TOFACITINIB CITRATE
     Indication: Rheumatoid arthritis
     Dosage: 11 MG, 1X/DAY
     Route: 048
     Dates: start: 202207

REACTIONS (10)
  - Product dose omission in error [Unknown]
  - Foot deformity [Unknown]
  - Hypoaesthesia [Unknown]
  - Paraesthesia [Unknown]
  - Nail discolouration [Unknown]
  - Arthralgia [Unknown]
  - Fatigue [Unknown]
  - Hypersomnia [Unknown]
  - Pain [Recovering/Resolving]
  - Balance disorder [Recovering/Resolving]
